FAERS Safety Report 4387850-5 (Version None)
Quarter: 2004Q2

REPORT INFORMATION
  Report Type: 
  Country: None (occurrence: None)
  Receive Date: 20040630
  Receipt Date: 20040621
  Transmission Date: 20050107
  Serious: Yes (Other)
  Sender: FDA-Public Use
  Company Number: PHFR2004GB02570

PATIENT
  Age: 35 Year
  Sex: Female

DRUGS (1)
  1. TERBINAFINE HCL [Suspect]
     Indication: NAIL TINEA
     Dosage: 250MG/DAY
     Route: 048
     Dates: start: 20040515, end: 20040607

REACTIONS (2)
  - AGEUSIA [None]
  - PAIN [None]
